FAERS Safety Report 4649034-2 (Version None)
Quarter: 2005Q2

REPORT INFORMATION
  Report Type: 
  Country: None (occurrence: None)
  Receive Date: 20050427
  Receipt Date: 20050414
  Transmission Date: 20051028
  Serious: Yes (Hospitalization)
  Sender: FDA-Public Use
  Company Number: 2004BI001626

PATIENT
  Age: 61 Year
  Sex: Female

DRUGS (11)
  1. AVONEX [Suspect]
     Indication: MULTIPLE SCLEROSIS
     Dosage: 30 UG; QW; IM
     Route: 030
     Dates: start: 20041202, end: 20041209
  2. BACLOFEN [Concomitant]
  3. PAXIL [Concomitant]
  4. LANOXIN [Concomitant]
  5. LASIX [Concomitant]
  6. NEURONTIN [Concomitant]
  7. LISINOPRIL [Concomitant]
  8. CARTIA XT [Concomitant]
  9. PROVIGIL [Concomitant]
  10. LORTAB [Concomitant]
  11. IMITREX [Concomitant]

REACTIONS (5)
  - DRUG EFFECT DECREASED [None]
  - DRUG HYPERSENSITIVITY [None]
  - FATIGUE [None]
  - HAEMOGLOBIN DECREASED [None]
  - RHABDOMYOLYSIS [None]
